FAERS Safety Report 6583393-9 (Version None)
Quarter: 2010Q1

REPORT INFORMATION
  Report Type: 
  Country: None (occurrence: None)
  Receive Date: 20100216
  Receipt Date: 20100204
  Transmission Date: 20100710
  Serious: Yes (Congenital Anomaly)
  Sender: FDA-Public Use
  Company Number: GB-PFIZER INC-2010015354

PATIENT

DRUGS (2)
  1. PHENYTOIN [Suspect]
     Dosage: 350 MG, 1X/DAY
     Route: 064
  2. VALPROIC ACID [Suspect]
     Dosage: 600 MG, 1X/DAY
     Route: 064

REACTIONS (2)
  - DRUG EXPOSURE DURING PREGNANCY [None]
  - VENTRICULAR SEPTAL DEFECT [None]
